FAERS Safety Report 12341805 (Version 1)
Quarter: 2016Q2

REPORT INFORMATION
  Report Type: Spontaneous
  Country: US (occurrence: None)
  Receive Date: 20160505
  Receipt Date: 20160505
  Transmission Date: 20160815
  Serious: No
  Sender: FDA-Public Use
  Company Number: None

PATIENT
  Sex: Female

DRUGS (1)
  1. PANTOPRAZOLE TABLET, 40MG [Suspect]
     Active Substance: PANTOPRAZOLE SODIUM
     Route: 048

REACTIONS (5)
  - Drug ineffective [None]
  - Disease recurrence [None]
  - Product quality issue [None]
  - Product substitution issue [None]
  - Gastrooesophageal reflux disease [None]
